FAERS Safety Report 23790434 (Version 2)
Quarter: 2024Q4

REPORT INFORMATION
  Report Type: Spontaneous
  Country: JP (occurrence: JP)
  Receive Date: 20240427
  Receipt Date: 20241106
  Transmission Date: 20250114
  Serious: Yes (Hospitalization)
  Sender: UCB
  Company Number: JP-UCBJ-CD202401621UCBPHAPROD

PATIENT
  Age: 88 Year
  Sex: Female
  Weight: 51 kg

DRUGS (3)
  1. RYSTIGGO [Suspect]
     Active Substance: ROZANOLIXIZUMAB-NOLI
     Indication: Myasthenia gravis
     Dosage: 280 MILLIGRAM, WEEKLY (QW)
     Route: 058
     Dates: start: 20240123, end: 20240214
  2. PREDNISOLONE ACETATE [Concomitant]
     Active Substance: PREDNISOLONE ACETATE
     Indication: Myasthenia gravis
     Dosage: 12.5 MILLIGRAM, ONCE DAILY (QD)
     Route: 048
  3. IMURAN [Concomitant]
     Active Substance: AZATHIOPRINE
     Indication: Myasthenia gravis
     Route: 048

REACTIONS (2)
  - Hypogammaglobulinaemia [Recovered/Resolved]
  - Herpes zoster [Recovered/Resolved]

NARRATIVE: CASE EVENT DATE: 20240221
